FAERS Safety Report 10877378 (Version 1)
Quarter: 2015Q1

REPORT INFORMATION
  Report Type: Report from Study
  Country: PR (occurrence: US)
  Receive Date: 20150302
  Receipt Date: 20150302
  Transmission Date: 20150721
  Serious: Yes (Hospitalization, Other)
  Sender: FDA-Public Use
  Company Number: PR-PFIZER INC-2015069262

PATIENT
  Age: 38 Year
  Sex: Female
  Weight: 113.38 kg

DRUGS (17)
  1. SOLU-MEDROL [Suspect]
     Active Substance: METHYLPREDNISOLONE SODIUM SUCCINATE
     Dosage: UNK
  2. MEDROL [Concomitant]
     Active Substance: METHYLPREDNISOLONE
     Dosage: UNK
  3. ROXEPHIN [Concomitant]
     Dosage: UNK
  4. ADVAIR HFA [Concomitant]
     Active Substance: FLUTICASONE PROPIONATE\SALMETEROL XINAFOATE
     Dosage: UNK
  5. TRAMADOL [Concomitant]
     Active Substance: TRAMADOL
     Indication: PAIN
     Dosage: 50 MG, AS REQUIRED
  6. CELEXA [Concomitant]
     Active Substance: CITALOPRAM HYDROBROMIDE
     Indication: ANXIETY
     Dosage: 40 MG, 1 IN 1 D
  7. INTEGRA PLUS [Concomitant]
     Active Substance: ASCORBIC ACID\BIOTIN\CALCIUM PANTOTHENATE\FERROUS ASPARTO GLYCINATE\FERROUS FUMARATE\FOLIC ACID\NIACIN\PYRIDOXINE HYDROCHLORIDE\RIBOFLAVIN\THIAMINE MONONITRATE
     Indication: ANAEMIA
     Dosage: 5 MG, 1X/DAY (15 MG,1 IN 1 D)
     Route: 048
  8. KLONOPIN [Concomitant]
     Active Substance: CLONAZEPAM
     Indication: ANXIETY
     Dosage: 2 MG, 2 IN 1 D
     Route: 048
  9. METHOTREXATE [Concomitant]
     Active Substance: METHOTREXATE
     Indication: RHEUMATOID ARTHRITIS
     Dosage: 1 MG, 1 IN 1 WK
     Route: 058
  10. HUMIRA [Suspect]
     Active Substance: ADALIMUMAB
     Indication: RHEUMATOID ARTHRITIS
     Dosage: 40 MG, CYCLIC (40 MG, 1 IN 2 WK)
     Route: 058
     Dates: start: 20140818, end: 20141110
  11. DECADRON [Concomitant]
     Active Substance: DEXAMETHASONE
     Dosage: UNK
  12. TESSALON [Concomitant]
     Active Substance: BENZONATATE
     Indication: COUGH
     Dosage: 200 MG, 3 IN 1 D
  13. COORZAR [Concomitant]
     Indication: HYPERTENSION
     Dosage: 100 MG, 1X/DAY (100 MG,1 IN 1 D)
     Route: 048
  14. DICLOFENAC [Concomitant]
     Active Substance: DICLOFENAC
     Dosage: 50 MG, AS REQUIRED
  15. OMEPRAZOLE. [Concomitant]
     Active Substance: OMEPRAZOLE
     Dosage: 40 MG, 1 IN 1 D
  16. KLONOPIN [Concomitant]
     Active Substance: CLONAZEPAM
     Indication: SOMNOLENCE
  17. LIPITOR [Concomitant]
     Active Substance: ATORVASTATIN CALCIUM
     Indication: BLOOD CHOLESTEROL
     Dosage: 40 MG, AT BED TIME
     Route: 048

REACTIONS (7)
  - Aspiration [Recovered/Resolved]
  - Pulmonary oedema [Recovered/Resolved]
  - Pneumonia [Recovered/Resolved]
  - Blood glucose increased [Unknown]
  - Decreased appetite [Unknown]
  - Vomiting [Recovered/Resolved]
  - Haemoglobin decreased [Recovered/Resolved]

NARRATIVE: CASE EVENT DATE: 2014
